FAERS Safety Report 5523283-3 (Version None)
Quarter: 2007Q4

REPORT INFORMATION
  Report Type: 
  Country: None (occurrence: None)
  Receive Date: 20071116
  Receipt Date: 20071101
  Transmission Date: 20080405
  Serious: Yes (Congenital Anomaly)
  Sender: FDA-Public Use
  Company Number: MK-6035717

PATIENT
  Age: 118 Month

DRUGS (3)
  1. DIHYDROCODEINE COMPOUND [Suspect]
     Indication: DRUG USE FOR UNKNOWN INDICATION
     Dosage: ; INTRAUTERINE
     Route: 015
  2. DIAZEPAM [Suspect]
     Indication: DRUG USE FOR UNKNOWN INDICATION
     Dosage: ; INTRAUTERINE
     Route: 015
  3. ALCOHOL /00002101/ [Concomitant]

REACTIONS (6)
  - ABNORMAL BEHAVIOUR [None]
  - DEVELOPMENTAL DELAY [None]
  - HYPERMETROPIA [None]
  - LEARNING DISORDER [None]
  - NYSTAGMUS [None]
  - POSTURE ABNORMAL [None]
